FAERS Safety Report 5144276-4 (Version None)
Quarter: 2006Q4

REPORT INFORMATION
  Report Type: 
  Country: None (occurrence: None)
  Receive Date: 20061106
  Receipt Date: 20060925
  Transmission Date: 20070319
  Serious: Yes (Hospitalization, Disabling, Other)
  Sender: FDA-Public Use
  Company Number: PL-BRISTOL-MYERS SQUIBB COMPANY-13531314

PATIENT
  Age: 54 Year
  Sex: Male

DRUGS (7)
  1. ERBITUX [Suspect]
     Indication: OESOPHAGEAL CARCINOMA
     Route: 042
     Dates: start: 20060821, end: 20060904
  2. RADIATION THERAPY [Suspect]
     Indication: OESOPHAGEAL CARCINOMA
     Dates: start: 20060904, end: 20060904
  3. CLEXANE [Concomitant]
     Indication: DRUG USE FOR UNKNOWN INDICATION
     Dates: start: 20060809
  4. VIVACOR [Concomitant]
     Indication: DRUG USE FOR UNKNOWN INDICATION
     Dates: start: 20060809
  5. ZOCOR [Concomitant]
     Indication: DRUG USE FOR UNKNOWN INDICATION
     Dates: start: 20060809
  6. KETONAL [Concomitant]
     Indication: DRUG USE FOR UNKNOWN INDICATION
     Dates: start: 20060816
  7. AMIODARONE HCL [Concomitant]
     Indication: DRUG USE FOR UNKNOWN INDICATION
     Dates: start: 20060809

REACTIONS (2)
  - ACUTE CORONARY SYNDROME [None]
  - INFUSION RELATED REACTION [None]
